FAERS Safety Report 9269224 (Version 1)
Quarter: 2013Q2

REPORT INFORMATION
  Report Type: Spontaneous
  Country: US (occurrence: US)
  Receive Date: 20130503
  Receipt Date: 20130503
  Transmission Date: 20140414
  Serious: No
  Sender: FDA-Public Use
  Company Number: US-PFIZER INC-2013132112

PATIENT
  Age: 36 Year
  Sex: Female
  Weight: 74.83 kg

DRUGS (4)
  1. PRISTIQ [Suspect]
     Indication: ANXIETY
     Dosage: 50 MG, 1X/DAY
     Route: 048
  2. PRISTIQ [Suspect]
     Indication: DEPRESSION
  3. WELLBUTRIN [Suspect]
     Dosage: UNK
  4. KLONOPIN [Concomitant]
     Indication: ANXIETY
     Dosage: UNK

REACTIONS (5)
  - Off label use [Unknown]
  - Negative thoughts [Unknown]
  - Tremor [Unknown]
  - Irritability [Unknown]
  - Crying [Unknown]
